FAERS Safety Report 9174945 (Version 1)
Quarter: 2013Q1

REPORT INFORMATION
  Report Type: Spontaneous
  Country: US (occurrence: US)
  Receive Date: 20130320
  Receipt Date: 20130320
  Transmission Date: 20140127
  Serious: Yes (Hospitalization)
  Sender: FDA-Public Use
  Company Number: US-GLAXOSMITHKLINE-A1015489A

PATIENT
  Age: 59 Year
  Sex: Male

DRUGS (5)
  1. AVANDIA [Suspect]
     Indication: BLOOD GLUCOSE
     Dosage: 40MG PER DAY
     Route: 048
     Dates: start: 2005, end: 2009
  2. GLUCOVANCE [Concomitant]
  3. PREDNISONE [Concomitant]
  4. HYDROCODONE [Concomitant]
  5. METHOTREXATE [Concomitant]

REACTIONS (3)
  - Myocardial infarction [Not Recovered/Not Resolved]
  - Stent placement [Unknown]
  - Coronary artery occlusion [Not Recovered/Not Resolved]
